FAERS Safety Report 5202504-0 (Version None)
Quarter: 2006Q4

REPORT INFORMATION
  Report Type: 
  Country: None (occurrence: None)
  Receive Date: 20061018
  Receipt Date: 20060829
  Transmission Date: 20070319
  Serious: Yes (Other)
  Sender: FDA-Public Use
  Company Number: 2006082474

PATIENT
  Age: 82 Year
  Sex: Female

DRUGS (1)
  1. MACUGEN [Suspect]
     Indication: DRUG USE FOR UNKNOWN INDICATION
     Dosage: OPHTHALMIC
     Route: 047
     Dates: start: 20060620, end: 20060620

REACTIONS (1)
  - ENDOPHTHALMITIS [None]
